FAERS Safety Report 5224741-1 (Version None)
Quarter: 2007Q1

REPORT INFORMATION
  Report Type: 
  Country: None (occurrence: None)
  Receive Date: 20070129
  Receipt Date: 20070129
  Transmission Date: 20070707
  Serious: Yes (Life-Threatening, Hospitalization)
  Sender: FDA-Public Use
  Company Number: None

PATIENT
  Age: 40 Year
  Sex: Female
  Weight: 61.2356 kg

DRUGS (1)
  1. LEVAQUIN [Suspect]
     Indication: SINUSITIS
     Dosage: 1 PILL ONCE DAILY PO
     Route: 048
     Dates: start: 20070126, end: 20070126

REACTIONS (6)
  - PARAESTHESIA ORAL [None]
  - PHARYNGEAL OEDEMA [None]
  - RASH [None]
  - RESPIRATORY RATE INCREASED [None]
  - SWELLING FACE [None]
  - SWOLLEN TONGUE [None]
